FAERS Safety Report 4994025-5 (Version None)
Quarter: 2006Q2

REPORT INFORMATION
  Report Type: 
  Country: None (occurrence: None)
  Receive Date: 20060505
  Receipt Date: 20060424
  Transmission Date: 20061013
  Serious: Yes (Disabling, Other)
  Sender: FDA-Public Use
  Company Number: US-BRISTOL-MYERS SQUIBB COMPANY-13356746

PATIENT
  Age: 73 Year
  Sex: Female

DRUGS (7)
  1. KENALOG-40 [Suspect]
     Indication: CATARACT OPERATION
     Route: 031
     Dates: start: 20060307, end: 20060307
  2. BSS [Concomitant]
  3. AZOPT [Concomitant]
  4. TETRACAINE POLYGYL STERILE OPHTHALMIC SOLUTION [Concomitant]
  5. BETADINE [Concomitant]
  6. VIGAMOX [Concomitant]
  7. AK-TROL [Concomitant]

REACTIONS (1)
  - ENDOPHTHALMITIS [None]
